FAERS Safety Report 22352505 (Version 2)
Quarter: 2025Q2

REPORT INFORMATION
  Report Type: Spontaneous
  Country: GB (occurrence: GB)
  Receive Date: 20230522
  Receipt Date: 20250617
  Transmission Date: 20250716
  Serious: Yes (Other)
  Sender: AMGEN
  Company Number: GB-AMGEN-GBRSP2023085882

PATIENT

DRUGS (1)
  1. ADALIMUMAB [Suspect]
     Active Substance: ADALIMUMAB
     Indication: Crohn^s disease
     Route: 065

REACTIONS (8)
  - Neoplasm malignant [Unknown]
  - Urosepsis [Unknown]
  - Central nervous system infection [Unknown]
  - Lower respiratory tract infection [Unknown]
  - Gastrointestinal infection [Unknown]
  - Soft tissue infection [Unknown]
  - Therapy non-responder [Unknown]
  - Adverse event [Unknown]
